FAERS Safety Report 5591044-5 (Version None)
Quarter: 2008Q1

REPORT INFORMATION
  Report Type: 
  Country: None (occurrence: None)
  Receive Date: 20080115
  Receipt Date: 20080108
  Transmission Date: 20080703
  Serious: Yes (Other)
  Sender: FDA-Public Use
  Company Number: PHNU2007DE04100

PATIENT
  Sex: Male

DRUGS (4)
  1. ACE INHIBITOR NOS [Concomitant]
  2. BETA BLOCKING AGENTS [Concomitant]
  3. ASPIRIN [Concomitant]
  4. LOCOL [Suspect]
     Indication: HYPERCHOLESTEROLAEMIA
     Dosage: 80 MG, QD
     Route: 048
     Dates: start: 19970101, end: 20071205

REACTIONS (5)
  - MALAISE [None]
  - MUSCLE SPASMS [None]
  - MYALGIA [None]
  - OSTEOARTHRITIS [None]
  - RED BLOOD CELL SEDIMENTATION RATE DECREASED [None]
